FAERS Safety Report 6643298-1 (Version None)
Quarter: 2010Q1

REPORT INFORMATION
  Report Type: 
  Country: None (occurrence: None)
  Receive Date: 20100319
  Receipt Date: 20100310
  Transmission Date: 20100710
  Serious: Yes (Other)
  Sender: FDA-Public Use
  Company Number: GXKR2010FR02890

PATIENT
  Sex: Female

DRUGS (6)
  1. PACLITAXEL EBEWE (NGX) [Suspect]
     Indication: OVARIAN CANCER
     Dosage: 280 MG, QD
     Route: 042
     Dates: start: 20090302, end: 20090616
  2. CARBOPLATIN [Suspect]
     Indication: OVARIAN CANCER
     Dosage: 620 MG, QD
     Route: 042
     Dates: start: 20090302, end: 20090616
  3. POLARAMINE [Suspect]
     Indication: PREMEDICATION
     Dosage: 1 DF, QD
     Route: 042
     Dates: start: 20090302, end: 20090616
  4. METHYLPREDNISOLONE [Suspect]
     Indication: PREMEDICATION
     Dosage: 120 MG, QD
     Route: 042
     Dates: start: 20090302, end: 20090616
  5. ZOPHREN [Suspect]
     Indication: PREMEDICATION
     Dosage: UNK
     Route: 042
     Dates: start: 20090302, end: 20090616
  6. RANIPLEX [Suspect]
     Indication: PREMEDICATION
     Dosage: 1 DF, QD
     Route: 042
     Dates: start: 20090302, end: 20090616

REACTIONS (2)
  - HAIR DISORDER [None]
  - HYPERTRICHOSIS [None]
